FAERS Safety Report 15419118 (Version 1)
Quarter: 2018Q3

REPORT INFORMATION
  Report Type: Spontaneous
  Country: US (occurrence: US)
  Receive Date: 20180914
  Receipt Date: 20180914
  Transmission Date: 20181010
  Serious: No
  Sender: FDA-Public Use
  Company Number: None

PATIENT
  Sex: Female

DRUGS (1)
  1. VALSARTAN TABLETS, USP 320MG [Suspect]
     Active Substance: VALSARTAN

REACTIONS (1)
  - Product use issue [None]
